FAERS Safety Report 6123184-6 (Version None)
Quarter: 2009Q1

REPORT INFORMATION
  Report Type: 
  Country: None (occurrence: None)
  Receive Date: 20090318
  Receipt Date: 20090309
  Transmission Date: 20090719
  Serious: Yes (Other)
  Sender: FDA-Public Use
  Company Number: PHHY2009JP08686

PATIENT
  Sex: Male

DRUGS (10)
  1. ZOLEDRONIC ACID [Suspect]
     Indication: METASTASES TO BONE
     Dosage: 4 MG, QMO
     Route: 042
     Dates: start: 20080221, end: 20081202
  2. TAXOTERE [Concomitant]
     Dosage: UNK
     Route: 048
     Dates: start: 20080227
  3. OXYCONTIN [Concomitant]
     Dosage: 20 MG
     Route: 048
     Dates: start: 20080219
  4. NOVAMIN [Concomitant]
     Dosage: 10 MG
     Route: 048
     Dates: start: 20080219
  5. DECADRON [Concomitant]
     Dosage: 1 MG
     Route: 048
     Dates: start: 20070106
  6. ESTRACYT [Concomitant]
     Dosage: 4 DF
     Route: 048
     Dates: start: 20071031
  7. CALCIUM LACTATE [Concomitant]
     Dosage: 2 G
     Route: 048
     Dates: start: 20080225
  8. CYTOTEC [Concomitant]
     Dosage: 3 DF
     Route: 048
     Dates: start: 20080222
  9. GASTER [Concomitant]
     Dosage: 20 MG
     Route: 048
     Dates: start: 20080222
  10. MOBIC [Concomitant]
     Dosage: 10 MG
     Route: 048
     Dates: start: 20080219

REACTIONS (3)
  - HYPOCALCAEMIA [None]
  - OSTEONECROSIS [None]
  - TOOTH EXTRACTION [None]
